FAERS Safety Report 17202139 (Version 1)
Quarter: 2019Q4

REPORT INFORMATION
  Report Type: Report from Study
  Country: US (occurrence: US)
  Receive Date: 20191226
  Receipt Date: 20191226
  Transmission Date: 20200122
  Serious: Yes (Other)
  Sender: FDA-Public Use
  Company Number: US-PFIZER INC-2019552689

PATIENT
  Age: 65 Year
  Sex: Female

DRUGS (1)
  1. IBRANCE [Suspect]
     Active Substance: PALBOCICLIB
     Indication: BREAST CANCER
     Dosage: 125 MG, CYCLIC [21 DAYS THEN OFF FOR 7 DAYS]
     Route: 048
     Dates: start: 20191122

REACTIONS (5)
  - Syncope [Unknown]
  - Nausea [Unknown]
  - Fatigue [Unknown]
  - White blood cell count decreased [Unknown]
  - Hot flush [Unknown]

NARRATIVE: CASE EVENT DATE: 20191214
